FAERS Safety Report 20985200 (Version 1)
Quarter: 2022Q2

REPORT INFORMATION
  Report Type: Spontaneous
  Country: US (occurrence: None)
  Receive Date: 20220621
  Receipt Date: 20220621
  Transmission Date: 20220721
  Serious: No
  Sender: FDA-Public Use
  Company Number: US-ROCHE-2828388

PATIENT
  Sex: Female

DRUGS (11)
  1. XELODA [Suspect]
     Active Substance: CAPECITABINE
     Indication: Product used for unknown indication
     Route: 065
  2. HERCEPTIN HYLECTA [Suspect]
     Active Substance: HYALURONIDASE-OYSK\TRASTUZUMAB
     Indication: Product used for unknown indication
     Route: 058
  3. TUKYSA [Suspect]
     Active Substance: TUCATINIB
     Indication: Breast cancer female
     Route: 065
  4. DEXAMETHASONE [Concomitant]
     Active Substance: DEXAMETHASONE
  5. AROMASIN [Concomitant]
     Active Substance: EXEMESTANE
  6. CANNABIDIOL [Concomitant]
     Active Substance: CANNABIDIOL
  7. FISH OIL [Concomitant]
     Active Substance: FISH OIL
  8. GLUCOSAMINE [Concomitant]
     Active Substance: GLUCOSAMINE
  9. MELATONIN [Concomitant]
     Active Substance: MELATONIN
  10. ZINC [Concomitant]
     Active Substance: ZINC
  11. ELIGARD [Concomitant]
     Active Substance: LEUPROLIDE ACETATE

REACTIONS (6)
  - Rash [Recovering/Resolving]
  - Nausea [Unknown]
  - Stomatitis [Unknown]
  - COVID-19 [Unknown]
  - Arthralgia [Unknown]
  - Decreased appetite [Unknown]
